FAERS Safety Report 6904125-8 (Version None)
Quarter: 2010Q3

REPORT INFORMATION
  Report Type: 
  Country: None (occurrence: None)
  Receive Date: 20100804
  Receipt Date: 20090316
  Transmission Date: 20110219
  Serious: Yes (Hospitalization)
  Sender: FDA-Public Use
  Company Number: US-PFIZER INC-2009164977

PATIENT

DRUGS (2)
  1. LYRICA [Suspect]
     Indication: POST HERPETIC NEURALGIA
  2. VALTREX [Suspect]
     Indication: POST HERPETIC NEURALGIA

REACTIONS (2)
  - CONFUSIONAL STATE [None]
  - DELIRIUM [None]
